FAERS Safety Report 4715438-2 (Version None)
Quarter: 2005Q3

REPORT INFORMATION
  Report Type: 
  Country: None (occurrence: None)
  Receive Date: 20050713
  Receipt Date: 20050708
  Transmission Date: 20060218
  Serious: Yes (Disabling, Other)
  Sender: FDA-Public Use
  Company Number: 2005094355

PATIENT
  Sex: Female
  Weight: 77.1115 kg

DRUGS (3)
  1. CARDURA [Suspect]
     Indication: HYPERTENSION
     Dosage: 4 MG (4 MG, DAILY)
  2. DOXAZOSIN (DOXAZOSIN) [Suspect]
     Indication: HYPERTENSION
  3. DIOVAN ^NORVARTIS^ (VALSARTAN) [Concomitant]

REACTIONS (4)
  - ABASIA [None]
  - ASTHENIA [None]
  - FEELING ABNORMAL [None]
  - PHARMACEUTICAL PRODUCT COMPLAINT [None]
